FAERS Safety Report 9780658 (Version 2)
Quarter: 2014Q1

REPORT INFORMATION
  Report Type: Spontaneous
  Country: SE (occurrence: SE)
  Receive Date: 20131224
  Receipt Date: 20140219
  Transmission Date: 20141002
  Serious: Yes (Other)
  Sender: FDA-Public Use
  Company Number: SE-JNJFOC-20131212305

PATIENT
  Age: 67 Year
  Sex: Female

DRUGS (6)
  1. XARELTO [Suspect]
     Indication: PRODUCT USED FOR UNKNOWN INDICATION
     Route: 048
     Dates: start: 20130903, end: 20131111
  2. METOPROLOL TARTRATE [Concomitant]
     Route: 065
  3. FELODIPINE [Concomitant]
     Route: 065
  4. SIMVASTATIN ARROW [Concomitant]
     Route: 065
  5. VAGIFEM [Concomitant]
     Route: 065
  6. GLYTRIN [Concomitant]
     Route: 065

REACTIONS (1)
  - Alopecia [Not Recovered/Not Resolved]
